FAERS Safety Report 6217917-8 (Version None)
Quarter: 2009Q2

REPORT INFORMATION
  Report Type: 
  Country: None (occurrence: None)
  Receive Date: 20090604
  Receipt Date: 20090522
  Transmission Date: 20091009
  Serious: No
  Sender: FDA-Public Use
  Company Number: 006572

PATIENT
  Age: 64 Year
  Sex: Male

DRUGS (1)
  1. PLETAL [Suspect]
     Dosage: ORAL
     Route: 048

REACTIONS (1)
  - PULMONARY ALVEOLAR HAEMORRHAGE [None]
